FAERS Safety Report 9312795 (Version 2)
Quarter: 2013Q3

REPORT INFORMATION
  Report Type: Spontaneous
  Country: US (occurrence: US)
  Receive Date: 20130528
  Receipt Date: 20130716
  Transmission Date: 20140515
  Serious: No
  Sender: FDA-Public Use
  Company Number: US-009507513-1305USA012141

PATIENT
  Age: 81 Year
  Sex: Male
  Weight: 68.27 kg

DRUGS (6)
  1. CLARITIN-D-24 [Suspect]
     Indication: SINUS DISORDER
     Dosage: 10 MG, QD
     Route: 048
     Dates: start: 20130505
  2. CLARITIN-D-24 [Suspect]
     Indication: NASAL CONGESTION
  3. CLARITIN-D-24 [Suspect]
     Indication: MEDICAL OBSERVATION
  4. AMLODIPINE [Concomitant]
     Indication: BLOOD PRESSURE INCREASED
     Dosage: UNK UNK, UNKNOWN
  5. DOXAZOSIN MESYLATE [Concomitant]
     Indication: PROSTATIC DISORDER
     Dosage: UNK, UNKNOWN
  6. HYDROCHLOROT [Concomitant]
     Indication: PRODUCT USED FOR UNKNOWN INDICATION
     Dosage: UNK, UNKNOWN

REACTIONS (2)
  - Feeling abnormal [Recovered/Resolved]
  - Dizziness [Recovered/Resolved]
